FAERS Safety Report 6193648-8 (Version None)
Quarter: 2009Q2

REPORT INFORMATION
  Report Type: 
  Country: None (occurrence: None)
  Receive Date: 20090518
  Receipt Date: 20090512
  Transmission Date: 20091009
  Serious: Yes (Death)
  Sender: FDA-Public Use
  Company Number: GR-ELI_LILLY_AND_COMPANY-GR200905002913

PATIENT
  Sex: Female

DRUGS (7)
  1. GEMZAR [Suspect]
     Indication: BREAST CANCER METASTATIC
     Dosage: 1000 MG/M2, ON DAY 1+8 EVERY THREE WEEKS
     Route: 042
  2. DOCETAXEL [Concomitant]
     Indication: BREAST CANCER METASTATIC
     Dosage: 75 MG/M2, ON DAY 8 EVERY THREE WEEKS
     Route: 042
  3. DEXAMETHASONE 4MG TAB [Concomitant]
     Indication: PROPHYLAXIS
     Dosage: 8 MG, UNKNOWN
     Route: 042
  4. DIMETINDENE MALEATE [Concomitant]
     Indication: PROPHYLAXIS
     Dosage: 4 MG, UNKNOWN
     Route: 042
  5. CIMETIDINE HCL [Concomitant]
     Indication: PROPHYLAXIS
     Dosage: 150 MG, UNKNOWN
     Route: 042
  6. METHYLPREDNISOLONE 4MG TAB [Concomitant]
     Indication: PROPHYLAXIS
     Dosage: 16 MG, 2/D
     Route: 048
  7. ONDANSETRON [Concomitant]
     Indication: ANTIEMETIC SUPPORTIVE CARE
     Dosage: UNK, UNKNOWN
     Route: 065

REACTIONS (2)
  - GALLBLADDER PERFORATION [None]
  - PERITONITIS [None]
